FAERS Safety Report 8890121 (Version 1)
Quarter: 2012Q4

REPORT INFORMATION
  Report Type: Spontaneous
  Country: GB (occurrence: None)
  Receive Date: 20121031
  Receipt Date: 20121031
  Transmission Date: 20130627
  Serious: Yes (Other)
  Sender: FDA-Public Use
  Company Number: 2012AP003501

PATIENT
  Age: 73 Year
  Sex: Female

DRUGS (8)
  1. ALENDRONATE [Suspect]
     Indication: DRUG USE FOR UNKNOWN INDICATION
     Dosage: 70  MG;Unknown;PO;QW
     Route: 048
     Dates: start: 2002, end: 20120724
  2. IBANDRONATE SODIUM [Suspect]
     Dosage: 150  MG;QM
     Dates: start: 2006, end: 2009
  3. ACENOCOUMAROL (ACENOCOUMAROL) [Concomitant]
  4. CALCICHEW D3 (LEKOVIT CA) [Concomitant]
  5. LANSOPRAZOLE (LANSOPRAZOLE) [Concomitant]
  6. LOSARTAN (LOSARTAN) [Concomitant]
  7. PARACETAMOL (PARACETAMOL) [Concomitant]
  8. TEARS NATURALE (TEARS NATURALE) [Concomitant]

REACTIONS (1)
  - Femur fracture [None]
